FAERS Safety Report 16029666 (Version 3)
Quarter: 2019Q3

REPORT INFORMATION
  Report Type: Report from Study
  Country: CA (occurrence: CA)
  Receive Date: 20190304
  Receipt Date: 20190906
  Transmission Date: 20191004
  Serious: Yes (Other)
  Sender: FDA-Public Use
  Company Number: CA-ROCHE-2178920

PATIENT
  Age: 51 Year
  Sex: Female
  Weight: 89 kg

DRUGS (14)
  1. PREGABALIN. [Concomitant]
     Active Substance: PREGABALIN
     Route: 065
  2. OCREVUS [Suspect]
     Active Substance: OCRELIZUMAB
     Indication: MULTIPLE SCLEROSIS
     Dosage: DAY 1, DAY 15 AND EVERY 6 MONTHS
     Route: 042
     Dates: start: 20180817
  3. SOLU-MEDROL [Suspect]
     Active Substance: METHYLPREDNISOLONE SODIUM SUCCINATE
     Indication: PRODUCT USED FOR UNKNOWN INDICATION
     Route: 042
     Dates: start: 20190221
  4. ASPIRIN [ACETYLSALICYLIC ACID] [Concomitant]
     Active Substance: ASPIRIN
  5. METHYLPREDNISOLONE. [Concomitant]
     Active Substance: METHYLPREDNISOLONE
     Indication: PREMEDICATION
     Route: 042
  6. VITAMIN D3 [Concomitant]
     Active Substance: CHOLECALCIFEROL
  7. CORTISON [Concomitant]
     Active Substance: CORTISONE ACETATE
  8. CRESTOR [Concomitant]
     Active Substance: ROSUVASTATIN CALCIUM
  9. BENADRYL [Concomitant]
     Active Substance: DIPHENHYDRAMINE HYDROCHLORIDE
     Indication: PREMEDICATION
     Route: 048
     Dates: start: 20190221
  10. TYLENOL [Concomitant]
     Active Substance: ACETAMINOPHEN
     Indication: PREMEDICATION
     Route: 048
     Dates: start: 20190221
  11. PERINDOPRIL [Concomitant]
     Active Substance: PERINDOPRIL
     Route: 065
  12. FAMPYRA [Concomitant]
     Active Substance: DALFAMPRIDINE
     Route: 065
  13. CELEBREX [Concomitant]
     Active Substance: CELECOXIB
  14. OCREVUS [Suspect]
     Active Substance: OCRELIZUMAB
     Route: 042
     Dates: start: 20190221

REACTIONS (6)
  - Infusion related reaction [Recovered/Resolved]
  - Nasopharyngitis [Recovering/Resolving]
  - Agitation [Recovered/Resolved]
  - Constipation [Unknown]
  - Multiple sclerosis relapse [Recovering/Resolving]
  - Influenza [Recovering/Resolving]

NARRATIVE: CASE EVENT DATE: 20190204
